FAERS Safety Report 11328058 (Version 1)
Quarter: 2015Q3

REPORT INFORMATION
  Report Type: Spontaneous
  Country: CH (occurrence: CH)
  Receive Date: 20150731
  Receipt Date: 20150731
  Transmission Date: 20151125
  Serious: Yes (Other)
  Sender: FDA-Public Use
  Company Number: CH-BAXTER-2015BAX041797

PATIENT
  Age: 48 Year
  Sex: Female

DRUGS (2)
  1. ENDOXAN 1 G [Suspect]
     Active Substance: CYCLOPHOSPHAMIDE
     Indication: SYSTEMIC LUPUS ERYTHEMATOSUS
     Route: 065
  2. GANCICLOVIR. [Suspect]
     Active Substance: GANCICLOVIR
     Indication: CYTOMEGALOVIRUS CHORIORETINITIS
     Route: 042

REACTIONS (3)
  - CD4 lymphocytes decreased [Recovered/Resolved]
  - Neutropenia [Unknown]
  - Cytomegalovirus chorioretinitis [Recovering/Resolving]
